FAERS Safety Report 17623168 (Version 1)
Quarter: 2020Q2

REPORT INFORMATION
  Report Type: Other
  Country: IT (occurrence: IT)
  Receive Date: 20200403
  Receipt Date: 20200403
  Transmission Date: 20200713
  Serious: Yes (Life-Threatening, Hospitalization, Disabling)
  Sender: FDA-Public Use
  Company Number: IT-NOSTRUM LABORATORIES, INC.-2082288

PATIENT
  Age: 64 Year
  Sex: Female

DRUGS (1)
  1. MORPHINE SULFATE. [Suspect]
     Active Substance: MORPHINE SULFATE
     Indication: PAIN PROPHYLAXIS

REACTIONS (2)
  - Coma [Recovered/Resolved with Sequelae]
  - Leukoencephalopathy [Recovered/Resolved with Sequelae]
